FAERS Safety Report 26140884 (Version 1)
Quarter: 2025Q4

REPORT INFORMATION
  Report Type: Spontaneous
  Country: US (occurrence: US)
  Receive Date: 20251210
  Receipt Date: 20251210
  Transmission Date: 20260118
  Serious: No
  Sender: BAYER HEALTHCARE LLC
  Company Number: US-BAYER-2025A162117

PATIENT
  Sex: Female

DRUGS (3)
  1. CLARITIN [Suspect]
     Active Substance: LORATADINE
     Indication: Hypersensitivity
     Dosage: 1 DF, QD
     Route: 048
     Dates: start: 20251204, end: 202512
  2. CLARITIN [Suspect]
     Active Substance: LORATADINE
     Indication: Nasopharyngitis
  3. ASPIRIN [Concomitant]
     Active Substance: ASPIRIN

REACTIONS (1)
  - Dyspnoea [Recovering/Resolving]

NARRATIVE: CASE EVENT DATE: 20251204
